FAERS Safety Report 9512012 (Version 1)
Quarter: 2013Q1

REPORT INFORMATION
  Report Type: Spontaneous
  Country: US (occurrence: None)
  Receive Date: 20130305
  Receipt Date: 20130305
  Transmission Date: 20140127
  Serious: Yes (Other)
  Sender: FDA-Public Use
  Company Number: 163-21880-12102659

PATIENT
  Age: 62 Year
  Sex: Male

DRUGS (7)
  1. REVLIMID (LENALIDOMIDE) (25 MILLIGRAM, CAPSULES) [Suspect]
     Indication: PLASMA CELL MYELOMA
     Dosage: 25 MG, 1 IN 1 D, PO
     Route: 048
     Dates: start: 201101, end: 20110523
  2. AVAPRO (IRBESARTAN) (TABLETS) [Concomitant]
  3. ACYCLOVIR (ACICLOVIR) (TABLETS) [Concomitant]
  4. ASA (ACETYLSALICYLIC ACID) (TABLETS) [Concomitant]
  5. GLIMEPIRIDE (GLIMEPIRIDE) (TABLETS) [Concomitant]
  6. BORTEZOMIB (BORTEZOMIB) (TABLETS) [Concomitant]
  7. DEXAMETHASONE (DEXAMETHASONE) (TABLETS) [Concomitant]

REACTIONS (3)
  - Pancytopenia [None]
  - Peripheral sensory neuropathy [None]
  - Blood count abnormal [None]
